FAERS Safety Report 4819054-3 (Version None)
Quarter: 2005Q4

REPORT INFORMATION
  Report Type: 
  Country: None (occurrence: None)
  Receive Date: 20051101
  Receipt Date: 20051101
  Transmission Date: 20060501
  Serious: Yes (Other)
  Sender: FDA-Public Use
  Company Number: None

PATIENT
  Age: 70 Year
  Sex: Male
  Weight: 90.2658 kg

DRUGS (2)
  1. REMICADE [Suspect]
     Indication: RHEUMATOID ARTHRITIS
     Dosage: 300MG IV Q 8 WEEKS
     Route: 042
     Dates: start: 20020201, end: 20050201
  2. METHOTREXATE [Concomitant]

REACTIONS (2)
  - LYMPHADENOPATHY [None]
  - NON-HODGKIN'S LYMPHOMA [None]
